FAERS Safety Report 5431717-8 (Version None)
Quarter: 2007Q3

REPORT INFORMATION
  Report Type: 
  Country: None (occurrence: None)
  Receive Date: 20070830
  Receipt Date: 20070827
  Transmission Date: 20080115
  Serious: Yes (Other)
  Sender: FDA-Public Use
  Company Number: IT-BRISTOL-MYERS SQUIBB COMPANY-13890017

PATIENT
  Age: 51 Year
  Sex: Male

DRUGS (5)
  1. CYCLOPHOSPHAMIDE [Suspect]
     Indication: NON-HODGKIN'S LYMPHOMA
  2. DOXORUBICIN HCL [Suspect]
     Indication: NON-HODGKIN'S LYMPHOMA
  3. VINCRISTINE SULFATE [Suspect]
  4. METHYLPREDNISOLONE 16MG TAB [Suspect]
  5. RITUXIMAB [Suspect]
     Dates: end: 20051001

REACTIONS (1)
  - GUILLAIN-BARRE SYNDROME [None]
